FAERS Safety Report 23261936 (Version 1)
Quarter: 2023Q4

REPORT INFORMATION
  Report Type: Report from Study
  Country: US (occurrence: None)
  Receive Date: 20231205
  Receipt Date: 20231205
  Transmission Date: 20240110
  Serious: Yes (Other)
  Sender: FDA-Public Use
  Company Number: 2023A271645

PATIENT
  Sex: Female
  Weight: 69.9 kg

DRUGS (7)
  1. CALQUENCE [Suspect]
     Active Substance: ACALABRUTINIB
     Indication: Mantle cell lymphoma
     Route: 048
  2. LEVOTHYROXINE [Concomitant]
     Active Substance: LEVOTHYROXINE
  3. TYLENOL [Concomitant]
     Active Substance: ACETAMINOPHEN
  4. OMEPRAZOLE [Concomitant]
     Active Substance: OMEPRAZOLE
  5. IMBRUVICA [Concomitant]
     Active Substance: IBRUTINIB
  6. METFORMIN [Concomitant]
     Active Substance: METFORMIN HYDROCHLORIDE
  7. REVLIMID [Concomitant]
     Active Substance: LENALIDOMIDE

REACTIONS (1)
  - Malignant neoplasm progression [Not Recovered/Not Resolved]
